FAERS Safety Report 9305561 (Version 2)
Quarter: 2013Q4

REPORT INFORMATION
  Report Type: Spontaneous
  Country: US (occurrence: US)
  Receive Date: 20130523
  Receipt Date: 20131205
  Transmission Date: 20140711
  Serious: No
  Sender: FDA-Public Use
  Company Number: US-ASTRAZENECA-2011SE09711

PATIENT
  Age: 61 Year
  Sex: Female
  Weight: 81.6 kg

DRUGS (10)
  1. NEXIUM [Suspect]
     Indication: GASTROOESOPHAGEAL REFLUX DISEASE
     Route: 048
     Dates: start: 2010, end: 201309
  2. PRILOSEC DELAYED RELEASE CAPSULE [Suspect]
     Route: 048
  3. RANITIDINE [Concomitant]
     Indication: GASTROOESOPHAGEAL REFLUX DISEASE
  4. PEPTO BISMOL [Concomitant]
     Indication: FLATULENCE
  5. TUMS [Concomitant]
     Indication: ANTACID THERAPY
  6. CITRACAL [Concomitant]
     Indication: CONSTIPATION
  7. EYE DROPS [Concomitant]
     Indication: DRY EYE
  8. CALTRATE [Concomitant]
     Indication: SUPPLEMENTATION THERAPY
  9. MAGNESIUM [Concomitant]
     Indication: SUPPLEMENTATION THERAPY
  10. IBUPROPHEN [Concomitant]
     Indication: PAIN

REACTIONS (10)
  - Respiratory tract infection [Unknown]
  - Weight increased [Not Recovered/Not Resolved]
  - Abdominal distension [Not Recovered/Not Resolved]
  - Gastrooesophageal reflux disease [Not Recovered/Not Resolved]
  - Increased appetite [Unknown]
  - Eructation [Not Recovered/Not Resolved]
  - Constipation [Not Recovered/Not Resolved]
  - Abdominal pain upper [Not Recovered/Not Resolved]
  - Intentional drug misuse [Not Recovered/Not Resolved]
  - Drug ineffective [Unknown]
